FAERS Safety Report 10248321 (Version 1)
Quarter: 2014Q2

REPORT INFORMATION
  Report Type: Spontaneous
  Country: CA (occurrence: CA)
  Receive Date: 20140620
  Receipt Date: 20140620
  Transmission Date: 20141212
  Serious: Yes (Hospitalization)
  Sender: FDA-Public Use
  Company Number: CA-ROCHE-1420214

PATIENT
  Age: 83 Year
  Sex: Female
  Weight: 74 kg

DRUGS (5)
  1. XELODA [Suspect]
     Indication: PRODUCT USED FOR UNKNOWN INDICATION
     Dosage: 3.0 DOSAGE FORMS FOR 33 DAYS
     Route: 048
  2. METAMUCIL [Concomitant]
  3. ATORVASTATIN [Concomitant]
     Route: 065
  4. IRBESARTAN [Concomitant]
     Route: 065
  5. TYLENOL [Concomitant]
     Route: 065

REACTIONS (6)
  - Abdominal pain [Recovered/Resolved]
  - Asthenia [Recovered/Resolved]
  - Computerised tomogram abnormal [Recovered/Resolved]
  - Diarrhoea [Recovered/Resolved]
  - Gastrointestinal disorder [Recovered/Resolved]
  - Pyrexia [Recovered/Resolved]
